FAERS Safety Report 21463287 (Version 2)
Quarter: 2023Q4

REPORT INFORMATION
  Report Type: Spontaneous
  Country: US (occurrence: US)
  Receive Date: 20221017
  Receipt Date: 20231102
  Transmission Date: 20240110
  Serious: Yes (Other)
  Sender: FDA-Public Use
  Company Number: US-SUN PHARMACEUTICAL INDUSTRIES LTD-2022R1-359037

PATIENT
  Age: 50 Year
  Sex: Male

DRUGS (1)
  1. ILUMYA [Suspect]
     Active Substance: TILDRAKIZUMAB-ASMN
     Indication: Psoriasis
     Dosage: UNK
     Route: 065
     Dates: start: 202207

REACTIONS (4)
  - Urinary tract infection [Unknown]
  - Condition aggravated [Unknown]
  - Urethritis noninfective [Unknown]
  - Urethral pain [Unknown]
